FAERS Safety Report 16119081 (Version 1)
Quarter: 2019Q1

REPORT INFORMATION
  Report Type: Report from Study
  Country: US (occurrence: US)
  Receive Date: 20190326
  Receipt Date: 20190326
  Transmission Date: 20190418
  Serious: Yes (Hospitalization)
  Sender: FDA-Public Use
  Company Number: US-TAKEDA-2019TUS016564

PATIENT
  Age: 64 Year
  Sex: Female

DRUGS (1)
  1. VEDOLIZUMAB [Suspect]
     Active Substance: VEDOLIZUMAB
     Indication: COLITIS ULCERATIVE
     Dosage: UNK UNK, Q4WEEKS
     Route: 042

REACTIONS (4)
  - Off label use [Unknown]
  - Colitis ulcerative [Unknown]
  - Cardiomegaly [Unknown]
  - H1N1 influenza [Unknown]

NARRATIVE: CASE EVENT DATE: 201902
